FAERS Safety Report 7931850-2 (Version None)
Quarter: 2011Q4

REPORT INFORMATION
  Report Type: 
  Country: None (occurrence: None)
  Receive Date: 20111121
  Receipt Date: 20111108
  Transmission Date: 20120403
  Serious: Yes (Hospitalization)
  Sender: FDA-Public Use
  Company Number: BE-BAYER-2011-107967

PATIENT
  Age: 80 Year
  Sex: Male
  Weight: 82 kg

DRUGS (10)
  1. DIAMICRON [Concomitant]
     Indication: DIABETES PROPHYLAXIS
     Dosage: 240 MG TOTAL DAILY DOSE
     Route: 048
     Dates: start: 20080219
  2. SORAFENIB (RAF KINASE INHIBITOR) [Suspect]
     Indication: COLON CANCER METASTATIC
     Dosage: 200 MG MORNING, 400 MG EVENING
     Route: 048
     Dates: start: 20110820, end: 20110909
  3. BISOPROLOL FUMARATE [Concomitant]
     Indication: HYPERTENSION
     Dosage: 10 MG TOTAL DAILY DOSE
     Route: 048
     Dates: start: 20080108
  4. LISINOPRIL [Concomitant]
     Indication: CARDIOVASCULAR EVENT PROPHYLAXIS
     Dosage: 10 MG TOTAL DAILY DOSE
     Route: 048
     Dates: start: 20080108
  5. NAPROXEN [Concomitant]
     Indication: PALMAR-PLANTAR ERYTHRODYSAESTHESIA SYNDROME
     Dosage: 1100 MG TOTAL DAILY DOSE
     Route: 048
     Dates: start: 20110929
  6. PANTOPRAZOLE [Concomitant]
     Indication: PROPHYLAXIS AGAINST GASTROINTESTINAL ULCER
     Dosage: 20 MG TOTAL DAILY DOSE
     Route: 048
     Dates: start: 20110929
  7. MOTILIUM [Concomitant]
     Indication: PROPHYLAXIS OF NAUSEA AND VOMITING
     Dosage: 10 MG, PRN
     Route: 048
     Dates: start: 20110903
  8. SORAFENIB (RAF KINASE INHIBITOR) [Suspect]
     Dosage: 400 MG, BID
     Route: 048
     Dates: start: 20110910, end: 20111022
  9. CAPECITABINE [Suspect]
     Indication: COLORECTAL CANCER
  10. SORAFENIB (RAF KINASE INHIBITOR) [Suspect]
     Dosage: UNK

REACTIONS (2)
  - ABDOMINAL ABSCESS [None]
  - ABSCESS RUPTURE [None]
